FAERS Safety Report 18124491 (Version 1)
Quarter: 2020Q3

REPORT INFORMATION
  Report Type: Spontaneous
  Country: US (occurrence: US)
  Receive Date: 20200807
  Receipt Date: 20200807
  Transmission Date: 20201103
  Serious: No
  Sender: FDA-Public Use
  Company Number: US-PFIZER INC-2020301290

PATIENT
  Age: 62 Year
  Sex: Female

DRUGS (1)
  1. IBRANCE [Suspect]
     Active Substance: PALBOCICLIB
     Indication: INTRADUCTAL PROLIFERATIVE BREAST LESION
     Dosage: 100 MG, CYCLIC(DAILY FOR 3 WEEKS FOLLOWED BY 1 WEEK OFF)
     Dates: start: 20200617

REACTIONS (3)
  - Off label use [Unknown]
  - Alopecia [Not Recovered/Not Resolved]
  - Product use in unapproved indication [Unknown]

NARRATIVE: CASE EVENT DATE: 20200617
